FAERS Safety Report 15145605 (Version 1)
Quarter: 2018Q3

REPORT INFORMATION
  Report Type: Spontaneous
  Country: DE (occurrence: DE)
  Receive Date: 20180713
  Receipt Date: 20180713
  Transmission Date: 20181010
  Serious: Yes (Other)
  Sender: FDA-Public Use
  Company Number: DE-B.I. PHARMACEUTICALS,INC./RIDGEFIELD-2018-12-002345

PATIENT
  Age: 68 Year
  Sex: Male

DRUGS (3)
  1. PREGABALIN NEURAXPHARM [Suspect]
     Active Substance: PREGABALIN
     Dosage: IN THE MIDDAY (50?25?50/DAY)
     Route: 048
     Dates: start: 201805
  2. MIRAPEX [Suspect]
     Active Substance: PRAMIPEXOLE DIHYDROCHLORIDE
     Indication: RESTLESS LEGS SYNDROME
     Dosage: 3 TIMES DAILY (MORNING, MIDDAY AND EVENING)
     Route: 048
  3. PREGABALIN NEURAXPHARM [Suspect]
     Active Substance: PREGABALIN
     Indication: RESTLESS LEGS SYNDROME
     Dosage: IN THE MORNING AND IN THE EVENING (50?25?50/DAY)
     Route: 048
     Dates: start: 201805

REACTIONS (4)
  - Dizziness [Unknown]
  - Hypotony of eye [Unknown]
  - Off label use [Unknown]
  - Restlessness [Unknown]
